FAERS Safety Report 7244871-2 (Version None)
Quarter: 2011Q1

REPORT INFORMATION
  Report Type: 
  Country: None (occurrence: None)
  Receive Date: 20110126
  Receipt Date: 20110119
  Transmission Date: 20110831
  Serious: No
  Sender: FDA-Public Use
  Company Number: US-PFIZER INC-2011013910

PATIENT
  Sex: Female

DRUGS (3)
  1. MILNACIPRAN HYDROCHLORIDE [Suspect]
     Dosage: 12.5 MG, 2X/DAY
     Route: 048
     Dates: start: 20110116
  2. PRISTIQ [Suspect]
     Indication: DEPRESSION
     Dosage: 50 MG ONE TABLET IN MORNING AND TWO TABLETS IN NIGHT
     Route: 048
     Dates: end: 20110117
  3. MILNACIPRAN HYDROCHLORIDE [Suspect]
     Indication: FIBROMYALGIA
     Dosage: 12.5 MG, 1X/DAY
     Route: 048
     Dates: start: 20110116, end: 20110116

REACTIONS (7)
  - MALAISE [None]
  - NIGHTMARE [None]
  - CRYING [None]
  - INFLUENZA LIKE ILLNESS [None]
  - IRRITABILITY [None]
  - NAUSEA [None]
  - DIZZINESS [None]
